FAERS Safety Report 8610265-8 (Version None)
Quarter: 2012Q3

REPORT INFORMATION
  Report Type: 
  Country: None (occurrence: None)
  Receive Date: 20120810
  Receipt Date: 20120810
  Transmission Date: 20120928
  Serious: Yes (Disabling, Other)
  Sender: FDA-Public Use
  Company Number: None

PATIENT
  Age: 45 Year
  Sex: Female
  Weight: 95 kg

DRUGS (1)
  1. CYMBALTA [Suspect]
     Indication: STRESS
     Dosage: 60MG

REACTIONS (19)
  - CRYING [None]
  - FLAT AFFECT [None]
  - ELECTRIC SHOCK [None]
  - ANXIETY [None]
  - HEADACHE [None]
  - MYALGIA [None]
  - WITHDRAWAL SYNDROME [None]
  - DYSARTHRIA [None]
  - ABNORMAL DREAMS [None]
  - WEIGHT INCREASED [None]
  - EAR PAIN [None]
  - FATIGUE [None]
  - ARTHRALGIA [None]
  - DIZZINESS [None]
  - STOMATITIS [None]
  - MALAISE [None]
  - VISION BLURRED [None]
  - METRORRHAGIA [None]
  - NIGHTMARE [None]
